FAERS Safety Report 8942476 (Version 1)
Quarter: 2012Q4

REPORT INFORMATION
  Report Type: 
  Country: US (occurrence: US)
  Receive Date: 20121204
  Receipt Date: 20121204
  Transmission Date: 20130627
  Serious: Yes (Other)
  Sender: FDA-Public Use
  Company Number: US-BAYER-2012-126082

PATIENT
  Age: 27 Year
  Sex: Female
  Weight: 60 kg

DRUGS (2)
  1. MIDOL [Suspect]
     Indication: MENSTRUAL CRAMP
     Dosage: 2 DF, PRN
     Route: 048
     Dates: start: 1999
  2. ALEVE CAPLET/TABLET,MIDOL EXTENDED RELIEF CAPLET [Suspect]
     Indication: MENSTRUAL CRAMP
     Dosage: 2 DF, PRN
     Route: 048
     Dates: start: 2008, end: 2010

REACTIONS (6)
  - Pharyngeal oedema [Recovered/Resolved]
  - Dyspnoea [Recovered/Resolved]
  - Eye swelling [Recovered/Resolved]
  - Drug ineffective [None]
  - Hypersensitivity [None]
  - Pharyngeal oedema [None]
